FAERS Safety Report 19836842 (Version 3)
Quarter: 2021Q4

REPORT INFORMATION
  Report Type: Report from Study
  Country: CA (occurrence: CA)
  Receive Date: 20210915
  Receipt Date: 20211116
  Transmission Date: 20220303
  Serious: Yes (Other)
  Sender: FDA-Public Use
  Company Number: CA-PUMA BIOTECHNOLOGY, INC.-2021-PUM-CA004049

PATIENT

DRUGS (4)
  1. NERLYNX [Suspect]
     Active Substance: NERATINIB
     Indication: Breast cancer metastatic
     Dosage: 120 MG, DAILY
     Route: 048
     Dates: start: 20210714, end: 20210720
  2. NERLYNX [Suspect]
     Active Substance: NERATINIB
     Indication: Off label use
     Dosage: 160 MG, DAILY
     Route: 048
     Dates: start: 20210721, end: 20210727
  3. NERLYNX [Suspect]
     Active Substance: NERATINIB
     Dosage: 240 MG, DAILY
     Route: 048
     Dates: start: 20210728, end: 20211028
  4. LOPERAMIDE [Concomitant]
     Active Substance: LOPERAMIDE
     Indication: Product used for unknown indication
     Dosage: UNK

REACTIONS (3)
  - Mastitis [Unknown]
  - Drug ineffective [Unknown]
  - Off label use [Recovered/Resolved]
